FAERS Safety Report 11589609 (Version 2)
Quarter: 2015Q4

REPORT INFORMATION
  Report Type: Spontaneous
  Country: US (occurrence: US)
  Receive Date: 20151002
  Receipt Date: 20151210
  Transmission Date: 20160304
  Serious: No
  Sender: FDA-Public Use
  Company Number: US-JNJFOC-20150903455

PATIENT
  Sex: Male

DRUGS (2)
  1. RISPERDAL [Suspect]
     Active Substance: RISPERIDONE
     Indication: PRODUCT USED FOR UNKNOWN INDICATION
     Route: 048
     Dates: start: 1999, end: 2014
  2. RISPERDAL CONSTA [Suspect]
     Active Substance: RISPERIDONE
     Indication: PRODUCT USED FOR UNKNOWN INDICATION
     Route: 030
     Dates: start: 1999, end: 201410

REACTIONS (13)
  - Emotional disorder [Unknown]
  - Incontinence [Unknown]
  - Gastrointestinal disorder [Unknown]
  - Urinary incontinence [Not Recovered/Not Resolved]
  - Dyssomnia [Not Recovered/Not Resolved]
  - Enuresis [Not Recovered/Not Resolved]
  - Motor dysfunction [Not Recovered/Not Resolved]
  - Adverse event [Unknown]
  - Gynaecomastia [Not Recovered/Not Resolved]
  - Skin odour abnormal [Unknown]
  - Abnormal weight gain [Unknown]
  - Hyperprolactinaemia [Unknown]
  - Delayed puberty [Not Recovered/Not Resolved]
